FAERS Safety Report 4776698-5 (Version None)
Quarter: 2005Q3

REPORT INFORMATION
  Report Type: 
  Country: None (occurrence: None)
  Receive Date: 20050923
  Receipt Date: 20050912
  Transmission Date: 20060218
  Serious: Yes (Death)
  Sender: FDA-Public Use
  Company Number: US-JNJFOC-20040103199

PATIENT
  Sex: Female
  Weight: 61.69 kg

DRUGS (13)
  1. INFLIXIMAB [Suspect]
     Indication: RHEUMATOID ARTHRITIS
     Route: 042
  2. FOSAMAX [Concomitant]
  3. METHOTREXATE [Concomitant]
  4. NITROGLYCERIN [Concomitant]
  5. CELEBREX [Concomitant]
  6. NEURONTIN [Concomitant]
  7. DIPYRIDAMOLE [Concomitant]
  8. FOLTX [Concomitant]
  9. OCUVITE EXTRA [Concomitant]
  10. OCUVITE EXTRA [Concomitant]
  11. OCUVITE EXTRA [Concomitant]
  12. CLARITIN [Concomitant]
  13. FLOVENT [Concomitant]

REACTIONS (1)
  - RHEUMATOID ARTHRITIS [None]
